FAERS Safety Report 7062643-9 (Version None)
Quarter: 2010Q4

REPORT INFORMATION
  Report Type: 
  Country: None (occurrence: None)
  Receive Date: 20101026
  Receipt Date: 20091216
  Transmission Date: 20110411
  Serious: No
  Sender: FDA-Public Use
  Company Number: US-PFIZER INC-2009291683

PATIENT
  Sex: Female
  Weight: 65.8 kg

DRUGS (1)
  1. LIPITOR [Suspect]

REACTIONS (3)
  - FATIGUE [None]
  - MUSCULAR WEAKNESS [None]
  - TREMOR [None]
